FAERS Safety Report 10409517 (Version 1)
Quarter: 2014Q3

REPORT INFORMATION
  Report Type: Spontaneous
  Country: US (occurrence: None)
  Receive Date: 20140825
  Receipt Date: 20140825
  Transmission Date: 20150326
  Serious: Yes (Other)
  Sender: FDA-Public Use
  Company Number: None

PATIENT
  Age: 53 Year
  Sex: Female

DRUGS (1)
  1. HUMIRA [Suspect]
     Active Substance: ADALIMUMAB
     Route: 058
     Dates: start: 20140722, end: 20140810

REACTIONS (6)
  - Nausea [None]
  - Malaise [None]
  - Headache [None]
  - Vomiting [None]
  - Injection site reaction [None]
  - Tremor [None]

NARRATIVE: CASE EVENT DATE: 20140810
